FAERS Safety Report 15965229 (Version 1)
Quarter: 2019Q1

REPORT INFORMATION
  Report Type: Spontaneous
  Country: DE (occurrence: DE)
  Receive Date: 20190215
  Receipt Date: 20190215
  Transmission Date: 20190418
  Serious: Yes (Hospitalization, Other)
  Sender: FDA-Public Use
  Company Number: DE-AUROBINDO-AUR-APL-2019-007590

PATIENT

DRUGS (2)
  1. VALSARTAN. [Suspect]
     Active Substance: VALSARTAN
     Dosage: 320 MILLIGRAM, ONCE A DAY
     Route: 065
     Dates: start: 201506
  2. VALSARTAN. [Suspect]
     Active Substance: VALSARTAN
     Indication: HYPERTENSION
     Dosage: 160 MILLIGRAM, ONCE A DAY
     Route: 065
     Dates: start: 201402

REACTIONS (7)
  - Duodenitis [Unknown]
  - Cholelithiasis [Unknown]
  - Pain [Unknown]
  - Arteriosclerosis coronary artery [Unknown]
  - Gastrointestinal submucosal tumour [Unknown]
  - Helicobacter gastritis [Unknown]
  - Cholangitis [Unknown]

NARRATIVE: CASE EVENT DATE: 201709
